FAERS Safety Report 7890433-3 (Version None)
Quarter: 2011Q4

REPORT INFORMATION
  Report Type: 
  Country: None (occurrence: None)
  Receive Date: 20111103
  Receipt Date: 20110721
  Transmission Date: 20120403
  Serious: No
  Sender: FDA-Public Use
  Company Number: US-AMGEN-USASP2011037202

PATIENT
  Age: 56 Year
  Sex: Female

DRUGS (1)
  1. ENBREL [Suspect]
     Indication: PSORIASIS
     Dosage: 50 MG, QWK
     Dates: start: 20110401, end: 20110912

REACTIONS (5)
  - HEADACHE [None]
  - SINUSITIS [None]
  - FOOT FRACTURE [None]
  - NEUROPATHY PERIPHERAL [None]
  - CARPAL TUNNEL SYNDROME [None]
